FAERS Safety Report 8932873 (Version 2)
Quarter: 2013Q2

REPORT INFORMATION
  Report Type: Spontaneous
  Country: US (occurrence: US)
  Receive Date: 20121129
  Receipt Date: 20130503
  Transmission Date: 20140414
  Serious: Yes (Hospitalization, Disabling)
  Sender: FDA-Public Use
  Company Number: US-BAYER-2012-124569

PATIENT
  Age: 47 Year
  Sex: Female

DRUGS (5)
  1. YASMIN [Suspect]
     Dosage: UNK
     Dates: start: 2004, end: 2005
  2. YASMIN [Suspect]
     Dosage: UNK
     Dates: start: 200707, end: 20100805
  3. YAZ [Suspect]
     Dosage: UNK
     Dates: start: 2004, end: 2005
  4. YAZ [Suspect]
     Dosage: UNK
     Dates: start: 200707, end: 20100805
  5. OCELLA [Suspect]
     Dosage: UNK

REACTIONS (7)
  - Deep vein thrombosis [Recovered/Resolved]
  - Injury [Recovered/Resolved]
  - Pain [Recovered/Resolved]
  - Deformity [None]
  - Anxiety [None]
  - Anhedonia [None]
  - Emotional distress [None]
